FAERS Safety Report 4648752-X (Version None)
Quarter: 2005Q2

REPORT INFORMATION
  Report Type: 
  Country: None (occurrence: None)
  Receive Date: 20050427
  Receipt Date: 20050414
  Transmission Date: 20051028
  Serious: Yes (Hospitalization, Other)
  Sender: FDA-Public Use
  Company Number: CIP04001351

PATIENT
  Age: 65 Year
  Sex: Female

DRUGS (1)
  1. ACTONEL [Suspect]
     Indication: OSTEOPOROSIS
     Dosage: 35 MG ONCE WEEKLY, ORAL
     Route: 048
     Dates: start: 20030801, end: 20040329

REACTIONS (4)
  - ADENOCARCINOMA [None]
  - GASTRIC CANCER [None]
  - GASTRIC ULCER [None]
  - METASTASES TO LYMPH NODES [None]
